FAERS Safety Report 4509978-9 (Version None)
Quarter: 2004Q4

REPORT INFORMATION
  Report Type: 
  Country: None (occurrence: None)
  Receive Date: 20041124
  Receipt Date: 20041117
  Transmission Date: 20050328
  Serious: Yes (Life-Threatening, Hospitalization, Other)
  Sender: FDA-Public Use
  Company Number: MY-ABBOTT-04P-101-0281089-00

PATIENT
  Sex: Male
  Weight: 69.9 kg

DRUGS (9)
  1. GENGRAF [Suspect]
     Indication: DRUG USE FOR UNKNOWN INDICATION
  2. ATENOLOL [Concomitant]
     Indication: HYPERTENSION
     Route: 048
     Dates: start: 20040210
  3. NIFEDIPINE [Concomitant]
     Indication: HYPERTENSION
     Route: 048
     Dates: start: 20040409
  4. INSULIN INITARD NORDISK [Concomitant]
     Indication: DIABETES MELLITUS
     Route: 058
     Dates: start: 20040312
  5. VASTAREL [Concomitant]
     Indication: MYOCARDIAL ISCHAEMIA
     Route: 048
  6. BUFFERIN [Concomitant]
     Indication: MYOCARDIAL ISCHAEMIA
     Route: 048
  7. ZOCOR [Concomitant]
     Indication: HYPERCHOLESTEROLAEMIA
     Route: 048
  8. AMLODIPINE BESYLATE [Concomitant]
     Indication: HYPERTENSION
     Route: 048
  9. CLOPIDOGREL BISULFATE [Concomitant]
     Indication: MYOCARDIAL ISCHAEMIA
     Route: 048

REACTIONS (4)
  - ACUTE MYOCARDIAL INFARCTION [None]
  - ACUTE PULMONARY OEDEMA [None]
  - HAEMODIALYSIS [None]
  - RENAL FAILURE ACUTE [None]
